FAERS Safety Report 13950089 (Version 1)
Quarter: 2017Q3

REPORT INFORMATION
  Report Type: Spontaneous
  Country: US (occurrence: US)
  Receive Date: 20170908
  Receipt Date: 20170908
  Transmission Date: 20171128
  Serious: No
  Sender: FDA-Public Use
  Company Number: US-ROCHE-1136692

PATIENT
  Sex: Male

DRUGS (6)
  1. SENOKOT [Concomitant]
     Active Substance: SENNOSIDES
  2. RITUXAN [Suspect]
     Active Substance: RITUXIMAB
     Indication: NON-HODGKIN^S LYMPHOMA
     Route: 065
     Dates: start: 19990507
  3. TYLENOL [Concomitant]
     Active Substance: ACETAMINOPHEN
  4. DECADRON [Concomitant]
     Active Substance: DEXAMETHASONE
  5. METAMUCIL [Concomitant]
     Active Substance: PLANTAGO SEED
  6. BENADRYL [Concomitant]
     Active Substance: DIPHENHYDRAMINE HYDROCHLORIDE

REACTIONS (7)
  - Nocturia [Unknown]
  - Fatigue [Unknown]
  - Muscular weakness [Unknown]
  - Epigastric discomfort [Unknown]
  - Aphthous ulcer [Unknown]
  - Peripheral swelling [Unknown]
  - Constipation [Unknown]
